FAERS Safety Report 6716060-9 (Version None)
Quarter: 2010Q2

REPORT INFORMATION
  Report Type: 
  Country: None (occurrence: None)
  Receive Date: 20100507
  Receipt Date: 20100504
  Transmission Date: 20101027
  Serious: Yes (Other)
  Sender: FDA-Public Use
  Company Number: A0856960A

PATIENT
  Age: 51 Year
  Sex: Male

DRUGS (8)
  1. PROMACTA [Suspect]
     Indication: IDIOPATHIC THROMBOCYTOPENIC PURPURA
     Dosage: 50MG PER DAY
     Dates: start: 20091008, end: 20091120
  2. COREG [Concomitant]
  3. FLONASE [Concomitant]
  4. GLIMEPIRIDE [Concomitant]
  5. LOSARTAN POTASSIUM [Concomitant]
  6. LOVAZA [Concomitant]
  7. ZOCOR [Concomitant]
  8. ZOLOFT [Concomitant]

REACTIONS (3)
  - ALANINE AMINOTRANSFERASE INCREASED [None]
  - ASPARTATE AMINOTRANSFERASE INCREASED [None]
  - DRUG INEFFECTIVE [None]
